FAERS Safety Report 9840668 (Version 1)
Quarter: 2013Q4

REPORT INFORMATION
  Report Type: Spontaneous
  Country: US (occurrence: None)
  Receive Date: 20131211
  Receipt Date: 20131211
  Transmission Date: 20140711
  Serious: Yes (Other)
  Sender: FDA-Public Use
  Company Number: ALL1-2011-04440

PATIENT
  Age: 68 Year
  Sex: Female
  Weight: 72.6 kg

DRUGS (5)
  1. AGRYLIN [Suspect]
     Indication: ESSENTIAL THROMBOCYTHAEMIA
     Dosage: 1X/DAY
     Route: 048
     Dates: start: 201001, end: 201001
  2. AVONEX [Concomitant]
  3. SPIRONOLACTONE [Concomitant]
  4. MULTIVITAMIN [Concomitant]
  5. ASPIRIN [Concomitant]

REACTIONS (4)
  - Atrial fibrillation [None]
  - Lymphocyte count abnormal [None]
  - Platelet count abnormal [None]
  - Haemoglobin decreased [None]
